FAERS Safety Report 7677754-4 (Version None)
Quarter: 2011Q3

REPORT INFORMATION
  Report Type: 
  Country: None (occurrence: None)
  Receive Date: 20110811
  Receipt Date: 20110808
  Transmission Date: 20111222
  Serious: Yes (Hospitalization, Other)
  Sender: FDA-Public Use
  Company Number: FR-PFIZER INC-2011180866

PATIENT
  Age: 51 Year
  Sex: Male

DRUGS (5)
  1. ZOLPIDEM [Concomitant]
  2. XALATAN [Suspect]
     Indication: GLAUCOMA
     Dosage: UNK
     Route: 047
     Dates: start: 20100801, end: 20100901
  3. VALSARTAN [Concomitant]
  4. NASONEX [Concomitant]
  5. CLARADOL [Concomitant]

REACTIONS (1)
  - ACUTE DISSEMINATED ENCEPHALOMYELITIS [None]
